FAERS Safety Report 7503805-3 (Version None)
Quarter: 2011Q2

REPORT INFORMATION
  Report Type: 
  Country: None (occurrence: None)
  Receive Date: 20110525
  Receipt Date: 20110520
  Transmission Date: 20111010
  Serious: Yes (Disabling)
  Sender: FDA-Public Use
  Company Number: HU-SANOFI-AVENTIS-2011SA031725

PATIENT
  Age: 74 Year
  Sex: Female

DRUGS (3)
  1. ENOXAPARIN SODIUM [Suspect]
     Route: 058
     Dates: start: 20110101, end: 20110506
  2. ENOXAPARIN SODIUM [Suspect]
     Route: 058
     Dates: start: 20110510, end: 20110510
  3. ASPIRIN [Suspect]
     Route: 048

REACTIONS (4)
  - SPONTANEOUS HAEMATOMA [None]
  - HAEMORRHAGE [None]
  - SKIN NECROSIS [None]
  - COMPARTMENT SYNDROME [None]
